FAERS Safety Report 7178250-3 (Version None)
Quarter: 2010Q4

REPORT INFORMATION
  Report Type: 
  Country: None (occurrence: None)
  Receive Date: 20101220
  Receipt Date: 20101208
  Transmission Date: 20110411
  Serious: Yes (Hospitalization, Disabling, Other)
  Sender: FDA-Public Use
  Company Number: US-ROCHE-727272

PATIENT
  Sex: Male
  Weight: 54.4 kg

DRUGS (1)
  1. ACCUTANE [Suspect]
     Indication: ACNE
     Dosage: STOP DATE: APRIL OR MAY 1999
     Route: 065
     Dates: start: 19990104, end: 19990101

REACTIONS (9)
  - CHEST PAIN [None]
  - COLITIS ULCERATIVE [None]
  - CYTOMEGALOVIRUS COLITIS [None]
  - DEPRESSION [None]
  - DIVERTICULUM [None]
  - DRY SKIN [None]
  - GASTROINTESTINAL INJURY [None]
  - INFLAMMATORY BOWEL DISEASE [None]
  - LIP DRY [None]
